FAERS Safety Report 8882616 (Version 1)
Quarter: 2012Q4

REPORT INFORMATION
  Report Type: 
  Country: NL (occurrence: NL)
  Receive Date: 20121102
  Receipt Date: 20121102
  Transmission Date: 20130627
  Serious: Yes (Death)
  Sender: FDA-Public Use
  Company Number: PHHY2012NL099189

PATIENT
  Sex: Female

DRUGS (4)
  1. ZOMETA [Suspect]
     Indication: LUNG CANCER METASTATIC
     Dosage: 4 mg /100ml  once in 28 days
  2. ZOMETA [Suspect]
     Dosage: 4 mg /100ml  once in 28 days
     Dates: start: 20111229
  3. ZOMETA [Suspect]
     Dosage: 4 mg /100ml  once in 28 days
     Dates: start: 20120918
  4. ZOMETA [Suspect]
     Dosage: 4 mg /100ml  once in 28 days
     Dates: start: 20121016

REACTIONS (1)
  - Death [Fatal]
